FAERS Safety Report 8173819-1 (Version None)
Quarter: 2012Q1

REPORT INFORMATION
  Report Type: 
  Country: None (occurrence: None)
  Receive Date: 20120229
  Receipt Date: 20120220
  Transmission Date: 20120608
  Serious: Yes (Hospitalization, Other)
  Sender: FDA-Public Use
  Company Number: ES-ELI_LILLY_AND_COMPANY-ES201202005819

PATIENT
  Sex: Female
  Weight: 77 kg

DRUGS (11)
  1. PREDNISONE [Concomitant]
     Indication: MUSCULAR WEAKNESS
     Dosage: 10 MG, QD
     Route: 048
     Dates: start: 20080101
  2. ASPIRIN [Concomitant]
     Indication: ANTICOAGULANT THERAPY
     Dosage: 300 MG, QD
     Route: 048
     Dates: start: 20120109, end: 20120202
  3. FORTEO [Suspect]
     Indication: OSTEOPOROSIS
     Dosage: 20 UG, QD
     Route: 058
     Dates: start: 20110416, end: 20120109
  4. FORTEO [Suspect]
     Dosage: 20 UG, QD
     Route: 058
     Dates: start: 20120120, end: 20120202
  5. LOSARTAN POTASSIUM [Concomitant]
     Indication: HYPERTENSION
     Dosage: 50 MG, QD
     Route: 048
     Dates: start: 20120119
  6. ASPIRIN [Concomitant]
     Dosage: 100 MG, QD
     Route: 048
     Dates: start: 20120201
  7. FORTEO [Suspect]
     Dosage: 20 UG, QD
     Route: 058
     Dates: start: 20120220
  8. RABEPRAZOLE SODIUM [Concomitant]
     Indication: PROPHYLAXIS
     Dosage: 20 MG, QD
     Route: 048
     Dates: start: 20120218
  9. MESTINON [Concomitant]
     Indication: MUSCULAR WEAKNESS
     Dosage: 60 MG, TID
     Route: 048
     Dates: start: 20080101
  10. CLOPIDOGREL [Concomitant]
     Indication: ANTICOAGULANT THERAPY
     Dosage: 75 MG, QD
     Route: 048
     Dates: start: 20120201
  11. TRAMADOL HCL [Concomitant]
     Indication: ANALGESIC THERAPY
     Dosage: 35 MG, PRN
     Route: 048

REACTIONS (3)
  - GASTROINTESTINAL HAEMORRHAGE [None]
  - GASTRIC FISTULA [None]
  - ANGINA PECTORIS [None]
